FAERS Safety Report 18232454 (Version 1)
Quarter: 2020Q3

REPORT INFORMATION
  Report Type: Spontaneous
  Country: FR (occurrence: FR)
  Receive Date: 20200904
  Receipt Date: 20200904
  Transmission Date: 20201103
  Serious: Yes (Other)
  Sender: FDA-Public Use
  Company Number: FR-TEVA-2020-FR-1822118

PATIENT
  Age: 67 Year
  Sex: Male
  Weight: 69.5 kg

DRUGS (2)
  1. VORICONAZOLE. [Suspect]
     Active Substance: VORICONAZOLE
     Indication: ABSCESS
     Dosage: 240  MG
     Route: 042
     Dates: start: 20200630
  2. TEICOPLANINE [Suspect]
     Active Substance: TEICOPLANIN
     Indication: ENDOCARDITIS
     Dosage: 400 MG
     Route: 042
     Dates: start: 20200507

REACTIONS (4)
  - Condition aggravated [Not Recovered/Not Resolved]
  - Cholestasis [Not Recovered/Not Resolved]
  - Hyperbilirubinaemia [Not Recovered/Not Resolved]
  - Hepatocellular injury [Not Recovered/Not Resolved]

NARRATIVE: CASE EVENT DATE: 202005
